FAERS Safety Report 20359248 (Version 1)
Quarter: 2022Q1

REPORT INFORMATION
  Report Type: Report from Study
  Country: CA (occurrence: CA)
  Receive Date: 20220121
  Receipt Date: 20220121
  Transmission Date: 20220423
  Serious: Yes (Other)
  Sender: FDA-Public Use
  Company Number: CA-ABBVIE-22K-028-4237380-00

PATIENT
  Sex: Male

DRUGS (1)
  1. HUMIRA [Suspect]
     Active Substance: ADALIMUMAB
     Indication: Crohn^s disease
     Route: 058
     Dates: start: 20190803

REACTIONS (6)
  - Pyoderma gangrenosum [Unknown]
  - Flatulence [Unknown]
  - Therapeutic response shortened [Unknown]
  - Pain [Unknown]
  - Abdominal discomfort [Unknown]
  - Arthralgia [Unknown]
